FAERS Safety Report 26065702 (Version 1)
Quarter: 2025Q4

REPORT INFORMATION
  Report Type: Report from Study
  Country: GB (occurrence: GB)
  Receive Date: 20251119
  Receipt Date: 20251119
  Transmission Date: 20260118
  Serious: Yes (Death)
  Sender: ABBVIE
  Company Number: GB-ABBVIE-6555333

PATIENT
  Sex: Female

DRUGS (1)
  1. SKYRIZI [Suspect]
     Active Substance: RISANKIZUMAB-RZAA
     Indication: Psoriasis
     Dosage: DOSE: SKYRIZI 150MG/1ML ?FOA: SOLUTION FOR INJECTION PRE-FILLED PENS  1 PRE-FILLED DISPOSABLE INJ...
     Route: 058

REACTIONS (1)
  - Death [Fatal]
